FAERS Safety Report 13130121 (Version 1)
Quarter: 2017Q1

REPORT INFORMATION
  Report Type: Spontaneous
  Country: NL (occurrence: NL)
  Receive Date: 20170119
  Receipt Date: 20170119
  Transmission Date: 20170428
  Serious: Yes (Hospitalization)
  Sender: FDA-Public Use
  Company Number: NL-UCBSA-2017001886

PATIENT
  Age: 72 Year
  Sex: Female
  Weight: 68 kg

DRUGS (4)
  1. XYZAL [Suspect]
     Active Substance: LEVOCETIRIZINE DIHYDROCHLORIDE
     Indication: OFF LABEL USE
  2. XYZAL [Suspect]
     Active Substance: LEVOCETIRIZINE DIHYDROCHLORIDE
     Indication: ALLERGY PROPHYLAXIS
     Dosage: 5 MG, ONCE DAILY (QD)
     Dates: start: 20161214, end: 20161226
  3. ARTIFICIAL TEARS [Concomitant]
     Active Substance: GLYCERIN\HYPROMELLOSES\POLYETHYLENE GLYCOL 400
     Indication: PRODUCT USED FOR UNKNOWN INDICATION
     Dosage: 20 UNK, 2X/DAY (BID)
     Dates: start: 2010
  4. SODIUM CHLORIDE. [Concomitant]
     Active Substance: SODIUM CHLORIDE
     Indication: PRODUCT USED FOR UNKNOWN INDICATION
     Dosage: 50 UNK, 3X/DAY (TID)
     Dates: start: 2015

REACTIONS (5)
  - Somnolence [Recovered/Resolved with Sequelae]
  - Surgery [Unknown]
  - Off label use [Unknown]
  - Nasopharyngitis [Recovered/Resolved with Sequelae]
  - Fatigue [Recovered/Resolved with Sequelae]

NARRATIVE: CASE EVENT DATE: 20161214
